FAERS Safety Report 9268104 (Version 2)
Quarter: 2014Q1

REPORT INFORMATION
  Report Type: Report from Study
  Country: US (occurrence: US)
  Receive Date: 20130502
  Receipt Date: 20140106
  Transmission Date: 20141002
  Serious: Yes (Other)
  Sender: FDA-Public Use
  Company Number: US-ALEXION-A201201562

PATIENT
  Age: 14 Year
  Sex: Female
  Weight: 56.8 kg

DRUGS (4)
  1. SOLIRIS [Suspect]
     Indication: HAEMOLYTIC URAEMIC SYNDROME
     Dosage: UNK
     Route: 042
     Dates: start: 20120718
  2. IRON [Concomitant]
     Dosage: UNK
  3. HYDROXIZINE [Concomitant]
  4. RANITIDINE [Concomitant]
     Dosage: UNK

REACTIONS (2)
  - Ear operation [Recovered/Resolved]
  - Musculoskeletal stiffness [Recovered/Resolved]
